FAERS Safety Report 5262297-8 (Version None)
Quarter: 2007Q1

REPORT INFORMATION
  Report Type: 
  Country: None (occurrence: None)
  Receive Date: 20070312
  Receipt Date: 20070227
  Transmission Date: 20070707
  Serious: Yes (Other)
  Sender: FDA-Public Use
  Company Number: PHBS2007JP03106

PATIENT
  Age: 59 Year
  Sex: Male

DRUGS (10)
  1. TEGRETOL [Suspect]
     Indication: CYST
     Dosage: 200 MG/DAY
     Route: 048
     Dates: start: 20070130
  2. SPIRONOLACTONE [Suspect]
     Dosage: 1 DF/DAY
     Route: 048
     Dates: end: 20070215
  3. VASOLAN [Concomitant]
     Dosage: 4 DF/DAY
     Route: 048
  4. SELBEX [Concomitant]
     Dosage: 2 DF/DAY
     Route: 048
  5. DIGOSIN [Concomitant]
     Dosage: 0.15 G/DAY
     Route: 065
  6. WARFARIN SODIUM [Concomitant]
     Dosage: 3.5 DF/DAY
     Route: 048
  7. TOWAMIN [Suspect]
     Dosage: 1 DF/DAY
     Route: 048
     Dates: end: 20070215
  8. TOCOPHERYL NICOTINATE [Suspect]
     Dosage: 2 DF/DAY
     Route: 048
     Dates: end: 20070215
  9. DICETAMIN [Suspect]
     Dosage: 50 MG/DAY
     Route: 048
     Dates: end: 20070215
  10. ALLOZYM [Suspect]
     Dosage: 1 DF/DAY
     Route: 048
     Dates: end: 20070215

REACTIONS (2)
  - BLOOD CREATININE INCREASED [None]
  - BLOOD POTASSIUM INCREASED [None]
